FAERS Safety Report 4650014-1 (Version None)
Quarter: 2005Q2

REPORT INFORMATION
  Report Type: 
  Country: None (occurrence: None)
  Receive Date: 20050428
  Receipt Date: 20050411
  Transmission Date: 20051028
  Serious: Yes (Hospitalization)
  Sender: FDA-Public Use
  Company Number: ATO-05-0124

PATIENT
  Age: 35 Year
  Sex: Female

DRUGS (4)
  1. TRISENOX [Suspect]
     Indication: ACUTE PROMYELOCYTIC LEUKAEMIA
     Dosage: (10.38 MG, QD, 5X/WK), IVI
     Route: 042
     Dates: start: 20050210, end: 20050323
  2. CLINDAMYCIN [Concomitant]
  3. PHENOBARBITAL [Concomitant]
  4. TERPRENONE [Concomitant]

REACTIONS (3)
  - ALANINE AMINOTRANSFERASE INCREASED [None]
  - ASPARTATE AMINOTRANSFERASE INCREASED [None]
  - WHITE BLOOD CELL COUNT DECREASED [None]
